FAERS Safety Report 7320123-7 (Version None)
Quarter: 2011Q1

REPORT INFORMATION
  Report Type: 
  Country: None (occurrence: None)
  Receive Date: 20110228
  Receipt Date: 20110215
  Transmission Date: 20110831
  Serious: Yes (Death)
  Sender: FDA-Public Use
  Company Number: US-ACTELION-A-NJ2011-44512

PATIENT

DRUGS (4)
  1. COUMADIN [Concomitant]
  2. CALCIUM CHANNEL BLOCKERS [Concomitant]
  3. TRACLEER [Suspect]
     Indication: PULMONARY ARTERIAL HYPERTENSION
     Dosage: UNK
     Route: 048
     Dates: start: 20090410, end: 20110201
  4. REVATIO [Concomitant]

REACTIONS (2)
  - RENAL FAILURE ACUTE [None]
  - LEFT VENTRICULAR DYSFUNCTION [None]
